FAERS Safety Report 5475048-9 (Version None)
Quarter: 2007Q4

REPORT INFORMATION
  Report Type: 
  Country: None (occurrence: None)
  Receive Date: 20071002
  Receipt Date: 20070925
  Transmission Date: 20080405
  Serious: Yes (Hospitalization)
  Sender: FDA-Public Use
  Company Number: US-ELI_LILLY_AND_COMPANY-US200707000731

PATIENT
  Age: 63 Year
  Sex: Male
  Weight: 145.12 kg

DRUGS (13)
  1. DIOVAN [Concomitant]
     Indication: HYPERTENSION
     Dosage: UNK, UNKNOWN
     Route: 048
  2. BYETTA [Suspect]
     Indication: TYPE 2 DIABETES MELLITUS
     Dosage: 5 UG, 2/D
     Route: 058
     Dates: start: 20051005, end: 20051105
  3. BYETTA [Suspect]
     Dosage: 10 UG, 2/D
     Route: 058
     Dates: start: 20061105, end: 20061201
  4. GLIPIZIDE [Concomitant]
     Indication: DIABETES MELLITUS
     Dosage: 10 MG, EACH MORNING
  5. GLIPIZIDE [Concomitant]
     Dosage: 5 MG, EACH EVENING
  6. GLIPIZIDE [Concomitant]
     Route: 048
     Dates: end: 20060901
  7. ATENOLOL [Concomitant]
     Indication: BLOOD PRESSURE INCREASED
     Dosage: 25 MG, 2/D
  8. VITAPLEX [Concomitant]
     Indication: EYE DISORDER
     Dosage: 1 UNK, 2/D
     Dates: start: 20060101
  9. CLONIDINE [Concomitant]
     Indication: BLOOD PRESSURE INCREASED
     Dosage: 0.1 MG, 2/D
     Dates: start: 20060101
  10. CLONIDINE [Concomitant]
     Dosage: UNK, UNKNOWN
     Route: 048
     Dates: start: 20050901, end: 20051001
  11. SPIRONOLACTONE [Concomitant]
     Indication: FLUID RETENTION
     Dosage: 50 MG, DAILY (1/D)
     Dates: start: 20060101
  12. SPIRONOLACTONE [Concomitant]
     Route: 048
     Dates: end: 20060901
  13. DARVOCET [Concomitant]
     Indication: ARTHRALGIA
     Dosage: 650 MG, AS NEEDED
     Dates: start: 20050101

REACTIONS (3)
  - CORONARY ARTERY OCCLUSION [None]
  - MYOCARDIAL INFARCTION [None]
  - WEIGHT DECREASED [None]
